FAERS Safety Report 10868565 (Version 1)
Quarter: 2015Q1

REPORT INFORMATION
  Report Type: Spontaneous
  Country: US (occurrence: US)
  Receive Date: 20150225
  Receipt Date: 20150225
  Transmission Date: 20150721
  Serious: No
  Sender: FDA-Public Use
  Company Number: US-EISAI MEDICAL RESEARCH-EC-2015-004187

PATIENT
  Sex: Male

DRUGS (4)
  1. ARICEPT [Suspect]
     Active Substance: DONEPEZIL HYDROCHLORIDE
     Route: 048
     Dates: end: 2010
  2. ASPIRIN. [Concomitant]
     Active Substance: ASPIRIN
  3. SIMVASTATIN. [Concomitant]
     Active Substance: SIMVASTATIN
     Indication: BLOOD CHOLESTEROL
  4. ARICEPT [Suspect]
     Active Substance: DONEPEZIL HYDROCHLORIDE
     Indication: DEMENTIA
     Route: 048
     Dates: start: 2009

REACTIONS (2)
  - Visual impairment [Recovered/Resolved]
  - Delusional perception [Recovered/Resolved]

NARRATIVE: CASE EVENT DATE: 2009
